FAERS Safety Report 9649261 (Version 2)
Quarter: 2013Q4

REPORT INFORMATION
  Report Type: Spontaneous
  Country: US (occurrence: US)
  Receive Date: 20131028
  Receipt Date: 20131115
  Transmission Date: 20140711
  Serious: Yes (Life-Threatening, Hospitalization, Other)
  Sender: FDA-Public Use
  Company Number: US-GLAXOSMITHKLINE-A1047182A

PATIENT
  Age: 59 Year
  Sex: Female
  Weight: 61.5 kg

DRUGS (6)
  1. VOTRIENT [Suspect]
     Indication: SOFT TISSUE CANCER
     Dosage: 800MG PER DAY
     Route: 048
     Dates: start: 20130803, end: 20130917
  2. BENTYL [Concomitant]
  3. KLOR-CON [Concomitant]
  4. ZOFRAN [Concomitant]
  5. COMPAZINE [Concomitant]
  6. DRONABINOL [Concomitant]

REACTIONS (4)
  - Cerebrovascular accident [Recovered/Resolved]
  - Ischaemia [Recovered/Resolved]
  - Thrombocytopenia [Recovered/Resolved]
  - Transaminases increased [Recovered/Resolved]
